FAERS Safety Report 10143691 (Version 1)
Quarter: 2014Q2

REPORT INFORMATION
  Report Type: Spontaneous
  Country: US (occurrence: US)
  Receive Date: 20140430
  Receipt Date: 20140430
  Transmission Date: 20141212
  Serious: No
  Sender: FDA-Public Use
  Company Number: US-PFIZER INC-2014116416

PATIENT
  Age: 71 Year
  Sex: Female

DRUGS (13)
  1. INLYTA [Suspect]
     Indication: RENAL CANCER
     Dosage: UNK
     Dates: start: 20140414
  2. CALCIUM [Concomitant]
     Dosage: UNK
  3. PROMETHAZINE HYDROCHLORIDE [Concomitant]
     Dosage: UNK
  4. CARVEDILOL [Concomitant]
     Dosage: UNK
  5. OMEPRAZOLE [Concomitant]
     Dosage: UNK
  6. CLOPIDOGREL BISULFATE [Concomitant]
     Dosage: UNK
  7. ONDANSETRON HYDROCHLORIDE [Concomitant]
     Dosage: UNK
  8. FUROSEMIDE [Concomitant]
     Dosage: UNK
  9. ACETAMINOPHEN W/OXYCODONE [Concomitant]
     Dosage: UNK
  10. LISINOPRIL [Concomitant]
     Dosage: UNK
  11. POTASSIUM CHLORIDE [Concomitant]
     Dosage: UNK
  12. METRONIDAZOLE [Concomitant]
     Dosage: UNK
  13. PRAVACHOL [Concomitant]
     Dosage: UNK

REACTIONS (1)
  - Hypotension [Unknown]
